FAERS Safety Report 19318854 (Version 1)
Quarter: 2021Q2

REPORT INFORMATION
  Report Type: Spontaneous
  Country: US (occurrence: US)
  Receive Date: 20210527
  Receipt Date: 20210527
  Transmission Date: 20210717
  Serious: Yes (Life-Threatening, Hospitalization, Other)
  Sender: FDA-Public Use
  Company Number: None

PATIENT
  Age: 67 Year
  Sex: Female
  Weight: 49.5 kg

DRUGS (1)
  1. PROLIA [Suspect]
     Active Substance: DENOSUMAB
     Indication: OSTEOPOROSIS
     Dosage: ?          QUANTITY:1 INJECTION(S);OTHER FREQUENCY:EVERY 6 MONTHS;?
     Route: 030
     Dates: start: 20150101, end: 20200707

REACTIONS (6)
  - Fall [None]
  - Gait inability [None]
  - Blood pressure abnormal [None]
  - Pathological fracture [None]
  - Femur fracture [None]
  - Pain in extremity [None]

NARRATIVE: CASE EVENT DATE: 20201109
